FAERS Safety Report 12082648 (Version 1)
Quarter: 2016Q1

REPORT INFORMATION
  Report Type: Spontaneous
  Country: US (occurrence: None)
  Receive Date: 20160212
  Receipt Date: 20160212
  Transmission Date: 20160526
  Serious: Yes (Hospitalization)
  Sender: FDA-Public Use
  Company Number: None

PATIENT
  Age: 11 Year
  Sex: Male
  Weight: 44.91 kg

DRUGS (3)
  1. CLONAZEPAM. [Suspect]
     Active Substance: CLONAZEPAM
     Indication: SEIZURE
     Dosage: 1 TABLET TID
     Route: 048
     Dates: start: 20160120, end: 20160206
  2. ETHOSUXIMIDE. [Concomitant]
     Active Substance: ETHOSUXIMIDE
  3. ZONISAMIDE. [Concomitant]
     Active Substance: ZONISAMIDE

REACTIONS (23)
  - Dizziness [None]
  - Somnolence [None]
  - Diarrhoea [None]
  - Petit mal epilepsy [None]
  - Headache [None]
  - Hallucination, visual [None]
  - Decreased activity [None]
  - Hallucination, auditory [None]
  - Feeling abnormal [None]
  - Inappropriate affect [None]
  - Vomiting [None]
  - Abnormal behaviour [None]
  - Fall [None]
  - Product quality issue [None]
  - Nasopharyngitis [None]
  - Tinnitus [None]
  - Social avoidant behaviour [None]
  - Nausea [None]
  - Barbiturates positive [None]
  - Loss of consciousness [None]
  - Respiratory tract congestion [None]
  - Seizure [None]
  - Psychotic disorder [None]

NARRATIVE: CASE EVENT DATE: 20160127
